FAERS Safety Report 4864434-3 (Version None)
Quarter: 2005Q4

REPORT INFORMATION
  Report Type: 
  Country: None (occurrence: None)
  Receive Date: 20051221
  Receipt Date: 20051221
  Transmission Date: 20060501
  Serious: No
  Sender: FDA-Public Use
  Company Number: None

PATIENT
  Age: 30 Year
  Sex: Male

DRUGS (1)
  1. STRATTERA [Suspect]
     Indication: ATTENTION DEFICIT/HYPERACTIVITY DISORDER
     Dosage: PO   ONE DOSE
     Route: 048
     Dates: start: 20051212, end: 20051212

REACTIONS (3)
  - DYSURIA [None]
  - MICTURITION URGENCY [None]
  - URINARY RETENTION [None]
